FAERS Safety Report 9936851 (Version 1)
Quarter: 2014Q1

REPORT INFORMATION
  Report Type: Spontaneous
  Country: US (occurrence: None)
  Receive Date: 20140114
  Receipt Date: 20140114
  Transmission Date: 20141002
  Serious: Yes (Hospitalization)
  Sender: FDA-Public Use
  Company Number: E2020-12207-SPO-US

PATIENT
  Sex: Female

DRUGS (1)
  1. ARICEPT (DONEPEZIL HYDROCHLORIDE) [Suspect]
     Route: 048
     Dates: start: 2008, end: 2011

REACTIONS (2)
  - Chest pain [None]
  - Gastric ulcer [None]
